FAERS Safety Report 11124526 (Version 2)
Quarter: 2015Q2

REPORT INFORMATION
  Report Type: Spontaneous
  Country: US (occurrence: US)
  Receive Date: 20150520
  Receipt Date: 20150521
  Transmission Date: 20150821
  Serious: Yes (Hospitalization, Disabling, Other)
  Sender: FDA-Public Use
  Company Number: US-009507513-1204USA00557

PATIENT
  Sex: Male

DRUGS (5)
  1. NEXIUM [Concomitant]
     Active Substance: ESOMEPRAZOLE MAGNESIUM
     Indication: GASTROOESOPHAGEAL REFLUX DISEASE
     Dosage: UNK
     Dates: start: 2006
  2. FOSAMAX [Suspect]
     Active Substance: ALENDRONATE SODIUM
     Dosage: UNK
     Route: 048
  3. ALENDRONATE SODIUM. [Suspect]
     Active Substance: ALENDRONATE SODIUM
     Dosage: UNK
     Route: 048
  4. PREDNISOLONE. [Concomitant]
     Active Substance: PREDNISOLONE
     Indication: BEHCET^S SYNDROME
     Dosage: 30 MG, QD
     Dates: start: 2000
  5. BONIVA [Suspect]
     Active Substance: IBANDRONATE SODIUM
     Indication: OSTEOPOROSIS
     Dosage: 150 MG, MONTHLY
     Route: 048
     Dates: start: 200605, end: 20110611

REACTIONS (12)
  - Intervertebral disc protrusion [Unknown]
  - Cerebrovascular accident [Unknown]
  - Fracture nonunion [Unknown]
  - Contusion [Unknown]
  - Hypertension [Unknown]
  - Hypercholesterolaemia [Unknown]
  - Femoral neck fracture [Unknown]
  - Back pain [Not Recovered/Not Resolved]
  - Bone disorder [Unknown]
  - Closed fracture manipulation [Unknown]
  - Spinal fusion surgery [Unknown]
  - Osteopenia [Unknown]

NARRATIVE: CASE EVENT DATE: 20100525
